FAERS Safety Report 8965687 (Version 1)
Quarter: 2012Q4

REPORT INFORMATION
  Report Type: Spontaneous
  Country: US (occurrence: None)
  Receive Date: 20121212
  Receipt Date: 20121212
  Transmission Date: 20130627
  Serious: Yes (Life-Threatening, Hospitalization)
  Sender: FDA-Public Use
  Company Number: None

PATIENT
  Age: 31 Year
  Sex: Female
  Weight: 106.6 kg

DRUGS (1)
  1. SPRINTEC [Suspect]
     Dosage: 28 daily po
     Route: 048
     Dates: start: 20111201, end: 20120917

REACTIONS (13)
  - Cerebral thrombosis [None]
  - Thrombosis [None]
  - Headache [None]
  - Dyspnoea [None]
  - Dizziness [None]
  - Fatigue [None]
  - Somnolence [None]
  - Yawning [None]
  - Musculoskeletal stiffness [None]
  - Convulsion [None]
  - Dehydration [None]
  - Disorientation [None]
  - Confusional state [None]
